FAERS Safety Report 10607389 (Version 2)
Quarter: 2014Q4

REPORT INFORMATION
  Report Type: Spontaneous
  Country: DE (occurrence: DE)
  Receive Date: 20141125
  Receipt Date: 20141212
  Transmission Date: 20150529
  Serious: Yes (Hospitalization)
  Sender: FDA-Public Use
  Company Number: DE-SA-2014SA159442

PATIENT
  Age: 49 Year
  Sex: Male
  Weight: 85 kg

DRUGS (2)
  1. AUBAGIO [Suspect]
     Active Substance: TERIFLUNOMIDE
     Indication: MULTIPLE SCLEROSIS
     Route: 048
     Dates: start: 201409, end: 201411
  2. AUBAGIO [Suspect]
     Active Substance: TERIFLUNOMIDE
     Indication: ENCEPHALOMYELITIS
     Route: 048
     Dates: start: 201409, end: 201411

REACTIONS (7)
  - Infection [Unknown]
  - Peripheral swelling [Unknown]
  - Dysphonia [Unknown]
  - Erythema [Unknown]
  - Skin discolouration [Unknown]
  - Arthralgia [Recovering/Resolving]
  - Oropharyngeal pain [Unknown]

NARRATIVE: CASE EVENT DATE: 201410
